FAERS Safety Report 10244485 (Version 3)
Quarter: 2014Q3

REPORT INFORMATION
  Report Type: Spontaneous
  Country: JP (occurrence: JP)
  Receive Date: 20140618
  Receipt Date: 20140710
  Transmission Date: 20150326
  Serious: Yes (Death, Hospitalization, Other)
  Sender: FDA-Public Use
  Company Number: PHHY2014JP074920

PATIENT
  Sex: Male

DRUGS (4)
  1. NEORAL [Suspect]
     Active Substance: CYCLOSPORINE
     Dosage: 200 MG DAILY
     Route: 048
     Dates: start: 20100419
  2. ANTITHYMOCYTE IMMUNOGLOBULIN [Suspect]
     Active Substance: THYMOCYTE IMMUNE GLOBULIN NOS
     Dates: start: 20100312
  3. ANTITHYMOCYTE IMMUNOGLOBULIN [Suspect]
     Active Substance: THYMOCYTE IMMUNE GLOBULIN NOS
     Dates: start: 20120530
  4. NEORAL [Suspect]
     Active Substance: CYCLOSPORINE
     Indication: APLASTIC ANAEMIA
     Dosage: 350 MG DAILY
     Route: 048
     Dates: start: 20100227, end: 20140630

REACTIONS (9)
  - Renal disorder [Unknown]
  - Renal impairment [Recovered/Resolved]
  - Pyrexia [Unknown]
  - Condition aggravated [Fatal]
  - Prostate cancer [Unknown]
  - Aplastic anaemia [Fatal]
  - Enterococcal infection [Unknown]
  - Gastrointestinal haemorrhage [Fatal]
  - Epstein-Barr virus associated lymphoproliferative disorder [Unknown]

NARRATIVE: CASE EVENT DATE: 20100327
